FAERS Safety Report 8152928-7 (Version None)
Quarter: 2012Q1

REPORT INFORMATION
  Report Type: 
  Country: None (occurrence: None)
  Receive Date: 20120221
  Receipt Date: 20120211
  Transmission Date: 20120608
  Serious: Yes (Other)
  Sender: FDA-Public Use
  Company Number: US-RB-034650-12

PATIENT
  Age: 63 Year
  Sex: Female

DRUGS (1)
  1. MUCINEX D [Suspect]
     Indication: RESPIRATORY TRACT CONGESTION
     Dosage: 1 TABLET EVERY 12 HOURS
     Route: 048
     Dates: start: 20120210

REACTIONS (1)
  - EPISTAXIS [None]
